FAERS Safety Report 6625553-4 (Version None)
Quarter: 2010Q1

REPORT INFORMATION
  Report Type: 
  Country: None (occurrence: None)
  Receive Date: 20100223
  Receipt Date: 20091109
  Transmission Date: 20100710
  Serious: No
  Sender: FDA-Public Use
  Company Number: 8054340

PATIENT
  Sex: Male
  Weight: 93.6 kg

DRUGS (5)
  1. CERTOLIZUMAB PEGOL (UCB, INC) [Suspect]
     Indication: CROHN'S DISEASE
     Dosage: (SUBCUTANEOUS)
     Route: 058
     Dates: start: 20090901, end: 20091104
  2. LAMICTAL CD [Concomitant]
  3. TOPAMAX [Concomitant]
  4. PENTASA [Concomitant]
  5. ANTACID TAB [Concomitant]

REACTIONS (3)
  - ASTHENIA [None]
  - DIPLOPIA [None]
  - VOMITING [None]
